FAERS Safety Report 17334903 (Version 2)
Quarter: 2020Q2

REPORT INFORMATION
  Report Type: Spontaneous
  Country: PT (occurrence: PT)
  Receive Date: 20200128
  Receipt Date: 20200519
  Transmission Date: 20200713
  Serious: Yes (Other)
  Sender: FDA-Public Use
  Company Number: PT-GLAXOSMITHKLINE-PT2020012488

PATIENT
  Age: 66 Year
  Sex: Female

DRUGS (4)
  1. BEN-U-RON [Concomitant]
     Active Substance: ACETAMINOPHEN
     Indication: PAIN
     Dosage: 1 DF, PRN
     Route: 065
  2. OMEPRAZOLE. [Concomitant]
     Active Substance: OMEPRAZOLE
     Indication: ABDOMINAL PAIN UPPER
     Dosage: UNK
     Route: 048
  3. FUCIDINE [Concomitant]
     Indication: HERPES ZOSTER
     Dosage: UNK
     Route: 065
  4. VALTREX [Suspect]
     Active Substance: VALACYCLOVIR HYDROCHLORIDE
     Indication: HERPES ZOSTER
     Dosage: 3000 MG, QD A TOTAL OF 4 UNITS WERE ADMINISTERED
     Route: 048
     Dates: start: 20200105, end: 20200106

REACTIONS (3)
  - Eye movement disorder [Recovered/Resolved]
  - Malaise [Unknown]
  - Syncope [Recovered/Resolved]

NARRATIVE: CASE EVENT DATE: 20200105
